FAERS Safety Report 4747949-8 (Version None)
Quarter: 2005Q3

REPORT INFORMATION
  Report Type: 
  Country: None (occurrence: None)
  Receive Date: 20050818
  Receipt Date: 20050810
  Transmission Date: 20060218
  Serious: Yes (Hospitalization, Other)
  Sender: FDA-Public Use
  Company Number: US-ABBOTT-05P-163-0308111-00

PATIENT
  Sex: Female
  Weight: 53.572 kg

DRUGS (16)
  1. HUMIRA [Suspect]
     Indication: RHEUMATOID ARTHRITIS
     Route: 058
     Dates: start: 20031001, end: 20050530
  2. DETROL LA [Concomitant]
     Indication: URINARY INCONTINENCE
     Route: 048
  3. PANTOPRAZOLE [Concomitant]
     Indication: PROPHYLAXIS
     Route: 048
  4. COUMADIN [Concomitant]
     Indication: PROPHYLAXIS
     Route: 048
  5. DICYCLOMINE HCL [Concomitant]
     Indication: IRRITABLE BOWEL SYNDROME
     Route: 048
  6. BELLA DONNA WITH PHENOBARBITAL [Concomitant]
     Indication: IRRITABLE BOWEL SYNDROME
     Route: 048
  7. LOSARTAN POTASSIUM [Concomitant]
     Indication: BLOOD PRESSURE INCREASED
     Route: 048
  8. CLONIDINE [Concomitant]
     Indication: BLOOD PRESSURE INCREASED
     Route: 048
  9. PROPRANOLOL HYDROCHLORIDE [Concomitant]
     Indication: BLOOD PRESSURE INCREASED
     Route: 048
  10. AMLODIPINE BESYLATE [Concomitant]
     Indication: BLOOD PRESSURE INCREASED
     Route: 048
  11. DEMEDEX [Concomitant]
     Indication: BLOOD PRESSURE INCREASED
     Route: 048
  12. AMITRIPTYLINE HCL [Concomitant]
     Indication: RHEUMATOID ARTHRITIS
     Route: 048
  13. CITALOPRAM HYDROBROMIDE [Concomitant]
     Indication: RHEUMATOID ARTHRITIS
     Route: 048
  14. LOMOTIL [Concomitant]
     Indication: IRRITABLE BOWEL SYNDROME
     Route: 048
  15. OXYCODONE [Concomitant]
     Indication: PAIN
     Route: 048
  16. PREDNISONE [Concomitant]
     Indication: RHEUMATOID ARTHRITIS
     Route: 048

REACTIONS (3)
  - ABDOMINAL PAIN [None]
  - INTRA-ABDOMINAL HAEMORRHAGE [None]
  - RENAL CELL CARCINOMA STAGE UNSPECIFIED [None]
